FAERS Safety Report 5647963-4 (Version None)
Quarter: 2008Q1

REPORT INFORMATION
  Report Type: 
  Country: None (occurrence: None)
  Receive Date: 20080229
  Receipt Date: 20080220
  Transmission Date: 20080703
  Serious: Yes (Hospitalization)
  Sender: FDA-Public Use
  Company Number: 2008-01471

PATIENT
  Age: 97 Year
  Sex: Female
  Weight: 43.1 kg

DRUGS (2)
  1. URSODIOL [Suspect]
     Indication: CHOLELITHIASIS
     Dosage: 1200 MG, BID, ORAL; 600 MG, BID, ORAL
     Route: 048
     Dates: start: 20070808, end: 20080108
  2. URSODIOL [Suspect]
     Indication: CHOLELITHIASIS
     Dosage: 1200 MG, BID, ORAL; 600 MG, BID, ORAL
     Route: 048
     Dates: start: 20080109

REACTIONS (8)
  - ANAEMIA [None]
  - BLOOD CHLORIDE INCREASED [None]
  - BLOOD SODIUM INCREASED [None]
  - DEHYDRATION [None]
  - DRUG ADMINISTRATION ERROR [None]
  - MEDICATION ERROR [None]
  - OVERDOSE [None]
  - URINARY TRACT INFECTION [None]
